FAERS Safety Report 6699880-9 (Version None)
Quarter: 2010Q2

REPORT INFORMATION
  Report Type: 
  Country: None (occurrence: None)
  Receive Date: 20100428
  Receipt Date: 20100416
  Transmission Date: 20101027
  Serious: Yes (Death, Hospitalization, Other)
  Sender: FDA-Public Use
  Company Number: US-RANBAXY-2010US-33304

PATIENT

DRUGS (18)
  1. GANCICLOVIR [Suspect]
     Indication: PROPHYLAXIS AGAINST TRANSPLANT REJECTION
     Dosage: 1000 MG, TID
     Route: 048
     Dates: start: 20080407, end: 20080702
  2. MARIBAVIR (PLACEBO) [Suspect]
     Indication: PROPHYLAXIS AGAINST TRANSPLANT REJECTION
     Dosage: 100 MG, BID
     Route: 048
     Dates: start: 20080407, end: 20080619
  3. ACYCLOVIR (PLACEBO) [Suspect]
     Indication: PROPHYLAXIS AGAINST TRANSPLANT REJECTION
     Dosage: 400 MG, BID
     Route: 048
     Dates: start: 20080407, end: 20080707
  4. ALDACTONE [Concomitant]
     Indication: POLYURIA
     Dosage: UNK,UNK
     Route: 065
  5. CELLCEPT [Concomitant]
     Indication: PROPHYLAXIS AGAINST TRANSPLANT REJECTION
     Dosage: UNK, UNK
     Route: 065
  6. EMCONCORMITIS [Concomitant]
     Indication: HYPERTENSION
     Dosage: UNK,UNK
     Route: 065
  7. IMODIUM [Concomitant]
     Indication: DIARRHOEA
     Dosage: UNK,UNK
     Route: 065
  8. INDERAL [Concomitant]
     Indication: PORTAL HYPERTENSION
     Dosage: UNK, UNK
     Route: 065
  9. INSULINE [Concomitant]
     Indication: DIABETES MELLITUS
     Dosage: UNK, UNK
     Route: 065
  10. LASIX [Concomitant]
     Indication: POLYURIA
     Dosage: UNK, UNK
     Route: 065
  11. MEDROL [Concomitant]
     Indication: PROPHYLAXIS AGAINST TRANSPLANT REJECTION
     Dosage: UNK, UNK
     Route: 065
  12. NEORAL [Concomitant]
     Indication: PROPHYLAXIS AGAINST TRANSPLANT REJECTION
     Dosage: UNK, UNK
     Route: 065
  13. OMEPRAZOLE [Concomitant]
     Indication: PROPHYLAXIS AGAINST GASTROINTESTINAL ULCER
     Dosage: UNK, UNK
     Route: 065
  14. SIPRALEXA [Concomitant]
     Indication: DEPRESSION
     Dosage: UNK, UNK
     Route: 065
  15. TAVANIC [Concomitant]
     Indication: PYREXIA
     Dosage: UNK, UNK
     Route: 065
  16. VANCOMYCIN HCL [Concomitant]
     Indication: CLOSTRIDIAL INFECTION
     Dosage: UNK, UNK
     Route: 065
  17. VALCYTE [Concomitant]
     Indication: CYTOMEGALOVIRUS INFECTION
     Dosage: UNK, UNK
     Route: 065
  18. XANAX [Concomitant]
     Indication: DRUG USE FOR UNKNOWN INDICATION
     Dosage: UNK, UNK
     Route: 065

REACTIONS (7)
  - BILE DUCT STENOSIS [None]
  - CLOSTRIDIUM DIFFICILE COLITIS [None]
  - CYTOMEGALOVIRUS INFECTION [None]
  - DRUG INEFFECTIVE [None]
  - ESCHERICHIA SEPSIS [None]
  - HEPATIC STEATOSIS [None]
  - PORTAL HYPERTENSION [None]
